FAERS Safety Report 20144953 (Version 1)
Quarter: 2021Q4

REPORT INFORMATION
  Report Type: Spontaneous
  Country: US (occurrence: None)
  Receive Date: 20211202
  Receipt Date: 20211202
  Transmission Date: 20220303
  Serious: Yes (Life-Threatening, Disabling, Other)
  Sender: FDA-Public Use
  Company Number: None

PATIENT
  Age: 28 Year
  Sex: Female
  Weight: 68.04 kg

DRUGS (1)
  1. NEXPLANON [Suspect]
     Active Substance: ETONOGESTREL

REACTIONS (12)
  - Suicidal ideation [None]
  - Mental impairment [None]
  - Pain [None]
  - Haemorrhage [None]
  - Panic attack [None]
  - Chest pain [None]
  - Pain in extremity [None]
  - Gastrointestinal disorder [None]
  - Personality change [None]
  - Psychiatric symptom [None]
  - Feeling of despair [None]
  - Anger [None]
